FAERS Safety Report 8282761-7 (Version None)
Quarter: 2012Q2

REPORT INFORMATION
  Report Type: 
  Country: None (occurrence: None)
  Receive Date: 20120413
  Receipt Date: 20120402
  Transmission Date: 20120825
  Serious: Yes (Hospitalization)
  Sender: FDA-Public Use
  Company Number: US-ROCHE-1056103

PATIENT
  Sex: Female

DRUGS (3)
  1. VICTRELIS [Concomitant]
  2. PEGASYS [Suspect]
     Indication: PRODUCT USED FOR UNKNOWN INDICATION
     Route: 065
  3. COPEGUS [Suspect]
     Indication: PRODUCT USED FOR UNKNOWN INDICATION
     Dosage: DOSE CHANGED
     Route: 065

REACTIONS (5)
  - ASTHENIA [None]
  - TRANSFUSION [None]
  - URINARY TRACT INFECTION [None]
  - ANAEMIA [None]
  - PAIN [None]
